FAERS Safety Report 12884835 (Version 5)
Quarter: 2016Q4

REPORT INFORMATION
  Report Type: Report from Study
  Country: US (occurrence: US)
  Receive Date: 20161026
  Receipt Date: 20161122
  Transmission Date: 20170207
  Serious: Yes (Life-Threatening, Hospitalization, Other)
  Sender: FDA-Public Use
  Company Number: US-GILEAD-2016-0240036

PATIENT
  Age: 54 Year
  Sex: Female

DRUGS (11)
  1. ADCIRCA [Concomitant]
     Active Substance: TADALAFIL
  2. REMODULIN [Concomitant]
     Active Substance: TREPROSTINIL
     Route: 042
  3. FOLIC ACID. [Concomitant]
     Active Substance: FOLIC ACID
  4. TADALAFIL [Concomitant]
     Active Substance: TADALAFIL
  5. POTASSIUM [Concomitant]
     Active Substance: POTASSIUM
  6. TREPROSTINIL [Concomitant]
     Active Substance: TREPROSTINIL
  7. DIGOXIN. [Concomitant]
     Active Substance: DIGOXIN
  8. PROTONIX                           /00661201/ [Concomitant]
     Active Substance: OMEPRAZOLE
  9. ALDACTONE [Concomitant]
     Active Substance: SPIRONOLACTONE
  10. AMBRISENTAN [Suspect]
     Active Substance: AMBRISENTAN
     Indication: PRODUCT USED FOR UNKNOWN INDICATION
     Dosage: 5 MG, QD
     Route: 065
     Dates: start: 20151019
  11. LASIX [Concomitant]
     Active Substance: FUROSEMIDE

REACTIONS (10)
  - Abdominal pain [Unknown]
  - Pneumonia [Recovered/Resolved]
  - Chest discomfort [Recovered/Resolved]
  - Endocarditis [Unknown]
  - Pyrexia [Unknown]
  - Painful respiration [Recovered/Resolved]
  - Neck pain [Unknown]
  - Lung disorder [Not Recovered/Not Resolved]
  - Nausea [Unknown]
  - Application site pain [Unknown]

NARRATIVE: CASE EVENT DATE: 20161018
